FAERS Safety Report 9802032 (Version 1)
Quarter: 2014Q1

REPORT INFORMATION
  Report Type: Spontaneous
  Country: US (occurrence: US)
  Receive Date: 20140107
  Receipt Date: 20140107
  Transmission Date: 20141002
  Serious: Yes (Other)
  Sender: FDA-Public Use
  Company Number: US-TEVA-454572USA

PATIENT
  Age: 82 Year
  Sex: Female
  Weight: 52.21 kg

DRUGS (3)
  1. PROAIR HFA [Suspect]
     Indication: SLEEP APNOEA SYNDROME
  2. ZOLOFT [Concomitant]
  3. XANAX [Concomitant]

REACTIONS (3)
  - Transient ischaemic attack [Unknown]
  - Disorientation [Not Recovered/Not Resolved]
  - Off label use [Not Recovered/Not Resolved]
